FAERS Safety Report 5480399-8 (Version None)
Quarter: 2007Q4

REPORT INFORMATION
  Report Type: 
  Country: None (occurrence: None)
  Receive Date: 20071004
  Receipt Date: 20071004
  Transmission Date: 20080405
  Serious: Yes (Life-Threatening)
  Sender: FDA-Public Use
  Company Number: None

PATIENT
  Age: 47 Year
  Sex: Male
  Weight: 81.6475 kg

DRUGS (1)
  1. CHANTIX [Suspect]
     Indication: SMOKING CESSATION THERAPY
     Dosage: .5MG, AND 5MG TWICE DAILY  3 DAYS, 4 DAYS PO
     Route: 048
     Dates: start: 20070810, end: 20070825

REACTIONS (8)
  - ABNORMAL BEHAVIOUR [None]
  - APATHY [None]
  - CHROMATOPSIA [None]
  - HALLUCINATION, VISUAL [None]
  - INSOMNIA [None]
  - SPEECH DISORDER [None]
  - STOMATITIS [None]
  - VISUAL DISTURBANCE [None]
